FAERS Safety Report 7316162-2 (Version None)
Quarter: 2011Q1

REPORT INFORMATION
  Report Type: 
  Country: None (occurrence: None)
  Receive Date: 20110225
  Receipt Date: 20110224
  Transmission Date: 20110831
  Serious: Yes (Other)
  Sender: FDA-Public Use
  Company Number: US-ABBOTT-10P-163-0689808-00

PATIENT
  Sex: Male
  Weight: 82.628 kg

DRUGS (8)
  1. CHLORTHALIDONE [Concomitant]
     Indication: DIURETIC THERAPY
  2. HYDROCHLOROTHIAZIDE [Concomitant]
     Indication: HYPERTENSION
  3. LUPRON DEPOT [Suspect]
  4. METOPROLOL SUCCINATE [Concomitant]
     Indication: HYPERTENSION
  5. LUPRON DEPOT [Suspect]
     Indication: PROSTATE CANCER
     Dates: start: 20090601, end: 20110207
  6. SIMVASTATIN [Concomitant]
     Indication: BLOOD CHOLESTEROL ABNORMAL
  7. LISINOPRIL [Concomitant]
     Indication: HYPERTENSION
  8. BYSTOLIC [Concomitant]
     Indication: HYPERTENSION

REACTIONS (6)
  - DIZZINESS [None]
  - WALKING AID USER [None]
  - INJECTION SITE REACTION [None]
  - CEREBROVASCULAR ACCIDENT [None]
  - TRANSIENT ISCHAEMIC ATTACK [None]
  - ASTHENIA [None]
